FAERS Safety Report 24143702 (Version 1)
Quarter: 2024Q3

REPORT INFORMATION
  Report Type: Spontaneous
  Country: PT (occurrence: PT)
  Receive Date: 20240727
  Receipt Date: 20240727
  Transmission Date: 20241016
  Serious: Yes (Death, Life-Threatening, Hospitalization)
  Sender: AMGEN
  Company Number: PT-AMGEN-PRTSP2024147279

PATIENT
  Age: 16 Year
  Sex: Male

DRUGS (1)
  1. BLINATUMOMAB [Suspect]
     Active Substance: BLINATUMOMAB
     Indication: B-cell type acute leukaemia
     Dosage: UNK (THREE CYCLES)
     Route: 065

REACTIONS (8)
  - Acute lymphocytic leukaemia recurrent [Fatal]
  - General physical health deterioration [Fatal]
  - Hepatotoxicity [Unknown]
  - Haemophagocytic lymphohistiocytosis [Unknown]
  - Hyperferritinaemia [Unknown]
  - Coagulopathy [Unknown]
  - Acute kidney injury [Unknown]
  - Cytokine release syndrome [Unknown]
